FAERS Safety Report 7421027-1 (Version None)
Quarter: 2011Q2

REPORT INFORMATION
  Report Type: 
  Country: None (occurrence: None)
  Receive Date: 20110418
  Receipt Date: 20110411
  Transmission Date: 20111010
  Serious: Yes (Death)
  Sender: FDA-Public Use
  Company Number: US-ROCHE-771062

PATIENT
  Sex: Male
  Weight: 103.1 kg

DRUGS (9)
  1. DOXAZOSIN MESYLATE [Concomitant]
     Indication: HYPERTENSION
  2. FINASTERIDUM [Concomitant]
     Dates: start: 20100101
  3. ADVAIR DISKUS 100/50 [Concomitant]
  4. PEMETREXED [Suspect]
     Indication: NON-SMALL CELL LUNG CANCER
     Dosage: LAST DOSE PRIOR TO SAE 10 APRIL 2011
     Route: 042
     Dates: start: 20110406
  5. BEVACIZUMAB [Suspect]
     Indication: NON-SMALL CELL LUNG CANCER
     Dosage: LAST DOSE PRIOR TO SAE 10 APRIL 2011
     Route: 042
     Dates: start: 20110406
  6. SPIRIVA [Concomitant]
  7. LISINOPRIL [Concomitant]
     Indication: HYPERTENSION
  8. DUONEB [Concomitant]
  9. PROTONIX [Concomitant]

REACTIONS (1)
  - SUDDEN DEATH [None]
